FAERS Safety Report 23431583 (Version 1)
Quarter: 2024Q1

REPORT INFORMATION
  Report Type: Spontaneous
  Country: US (occurrence: US)
  Receive Date: 20240123
  Receipt Date: 20240123
  Transmission Date: 20240410
  Serious: Yes (Life-Threatening, Hospitalization, Other)
  Sender: FDA-Public Use
  Company Number: US-ALKEM LABORATORIES LIMITED-US-ALKEM-2023-15640

PATIENT
  Age: 3 Week
  Sex: Female

DRUGS (16)
  1. LACOSAMIDE [Suspect]
     Active Substance: LACOSAMIDE
     Indication: Seizure
     Dosage: 2 MILLIGRAM/KILOGRAM/DOSE (INFUSION)
     Route: 065
  2. LACOSAMIDE [Suspect]
     Active Substance: LACOSAMIDE
     Dosage: 2.1 MILLIGRAM/KILOGRAM AT 1:20
     Route: 065
  3. LEVETIRACETAM [Suspect]
     Active Substance: LEVETIRACETAM
     Indication: Neonatal seizure
     Dosage: 100 MILLIGRAM/KILOGRAM/DAY DIVIDED TWICE DAILY
     Route: 042
  4. LEVETIRACETAM [Suspect]
     Active Substance: LEVETIRACETAM
     Dosage: 60 MILLIGRAM/KILOGRAM DIVIDED TWICE DAILY
     Route: 042
  5. LEVETIRACETAM [Suspect]
     Active Substance: LEVETIRACETAM
     Dosage: 30 MILLIGRAM/KILOGRAM AT 00.50
     Route: 042
  6. LEVETIRACETAM [Suspect]
     Active Substance: LEVETIRACETAM
     Dosage: 30 MILLIGRAM/KILOGRAM AT 13:44
     Route: 042
  7. LEVETIRACETAM [Suspect]
     Active Substance: LEVETIRACETAM
     Dosage: 32 MILLIGRAM/KILOGRAM
     Route: 042
  8. FOSPHENYTOIN [Suspect]
     Active Substance: FOSPHENYTOIN
     Indication: Neonatal seizure
     Dosage: 6 MILLIGRAM/KILOGRAM DIVIDED TWICE DAILY
     Route: 042
  9. FOSPHENYTOIN [Suspect]
     Active Substance: FOSPHENYTOIN
     Dosage: 3 MILLIGRAM/KILOGRAM AT 05:00
     Route: 042
  10. FOSPHENYTOIN [Suspect]
     Active Substance: FOSPHENYTOIN
     Dosage: 3 MILLIGRAM/KILOGRAM AT 16:25
     Route: 042
  11. FOSPHENYTOIN [Suspect]
     Active Substance: FOSPHENYTOIN
     Dosage: 3.2 MILLIGRAM/KILOGRAM AT 06:08
     Route: 042
  12. PHENOBARBITAL [Suspect]
     Active Substance: PHENOBARBITAL
     Indication: Neonatal seizure
     Dosage: 3 MILLIGRAM/KILOGRAM, BID
     Route: 042
  13. PHENOBARBITAL [Suspect]
     Active Substance: PHENOBARBITAL
     Dosage: 2 MILLIGRAM/KILOGRAM, BID (TWICE DAILY)
     Route: 042
  14. PHENOBARBITAL [Suspect]
     Active Substance: PHENOBARBITAL
     Dosage: 1.8 MILLIGRAM/KILOGRAM AT 9:49
     Route: 042
  15. PHENOBARBITAL [Suspect]
     Active Substance: PHENOBARBITAL
     Dosage: 1.8 MILLIGRAM/KILOGRAM AT 22:35
     Route: 042
  16. PHENOBARBITAL [Suspect]
     Active Substance: PHENOBARBITAL
     Dosage: 1.9 MILLIGRAM/KILOGRAM AT 22:16
     Route: 042

REACTIONS (4)
  - Cardiac arrest neonatal [Recovered/Resolved]
  - Atrioventricular block second degree [Recovered/Resolved]
  - Seizure [Recovered/Resolved]
  - Underdose [Unknown]
